FAERS Safety Report 6170902-7 (Version None)
Quarter: 2009Q2

REPORT INFORMATION
  Report Type: 
  Country: None (occurrence: None)
  Receive Date: 20090427
  Receipt Date: 20090416
  Transmission Date: 20091009
  Serious: Yes (Life-Threatening)
  Sender: FDA-Public Use
  Company Number: 250609

PATIENT
  Age: 35 Year
  Sex: Female

DRUGS (3)
  1. NOREPINEPHRINE BITARTRATE [Suspect]
     Indication: CEREBROVASCULAR SPASM
     Dosage: 2.2 MCG/KG/MIN 1.2 MCG/KG/MIN .6 MCG/KG/MIN
  2. DOBUTAMINE HCL [Concomitant]
  3. NIMODIPINE [Concomitant]

REACTIONS (10)
  - CARDIOGENIC SHOCK [None]
  - CEREBRAL ARTERY EMBOLISM [None]
  - COMA [None]
  - EJECTION FRACTION DECREASED [None]
  - ENTEROCOCCAL SEPSIS [None]
  - ESCHERICHIA SEPSIS [None]
  - MULTI-ORGAN FAILURE [None]
  - NEUROPATHY PERIPHERAL [None]
  - PARESIS [None]
  - RESPIRATORY FAILURE [None]
